FAERS Safety Report 4274562-1 (Version None)
Quarter: 2004Q1

REPORT INFORMATION
  Report Type: 
  Country: None (occurrence: None)
  Receive Date: 20040115
  Receipt Date: 20040105
  Transmission Date: 20041129
  Serious: Yes (Hospitalization)
  Sender: FDA-Public Use
  Company Number: HQWYE061106JAN04

PATIENT
  Age: 73 Year
  Sex: Female

DRUGS (9)
  1. PROPRANOLOL HCL [Suspect]
     Dosage: 40 MG 1X PER 1 DAY ORAL
     Route: 048
     Dates: end: 20031105
  2. CELEBREX [Concomitant]
     Dosage: ORAL
     Route: 048
     Dates: end: 20031001
  3. PREDNISONE [Suspect]
     Dosage: 10 MG 1X PER 1 DAY ORAL
     Route: 048
     Dates: end: 20031106
  4. ACETAMINOPHEN [Suspect]
  5. DEBRIDAT (TRIMEBUTINE MALEATE) [Suspect]
  6. LIPANOR (CIPROFIBRATE) [Suspect]
     Dosage: 100 MG 1X PER 1 DAY  ORAL
     Route: 048
     Dates: end: 20031030
  7. METHOTREXATE [Suspect]
     Dosage: 15 MG 1X PER 1 WK ORAL
     Route: 048
  8. OMEPRAZOLE [Suspect]
     Dosage: ORAL
     Route: 048
  9. PRACTAZIN (ALTIZIDE/SPIRONOLACTONE) [Suspect]
     Dosage: 1 DOSE 1X PER 1 DAY ORAL
     Route: 048
     Dates: end: 20031030

REACTIONS (1)
  - PULMONARY FIBROSIS [None]
